FAERS Safety Report 12332300 (Version 1)
Quarter: 2016Q2

REPORT INFORMATION
  Report Type: Spontaneous
  Country: US (occurrence: US)
  Receive Date: 20160504
  Receipt Date: 20160504
  Transmission Date: 20160815
  Serious: No
  Sender: FDA-Public Use
  Company Number: US-BAYER-2016-082848

PATIENT
  Age: 38 Year
  Sex: Female

DRUGS (1)
  1. BETASERON [Suspect]
     Active Substance: INTERFERON BETA-1B
     Dosage: UNK
     Dates: end: 2003

REACTIONS (2)
  - Maternal exposure during pregnancy [None]
  - Drug intolerance [None]

NARRATIVE: CASE EVENT DATE: 2003
